FAERS Safety Report 8127757-0 (Version None)
Quarter: 2012Q1

REPORT INFORMATION
  Report Type: 
  Country: None (occurrence: None)
  Receive Date: 20120210
  Receipt Date: 20120206
  Transmission Date: 20120608
  Serious: Yes (Other)
  Sender: FDA-Public Use
  Company Number: US-PFIZER INC-2010104615

PATIENT
  Sex: Female
  Weight: 61.224 kg

DRUGS (7)
  1. ATENOLOL [Concomitant]
     Dosage: UNK
  2. LYRICA [Suspect]
     Indication: FIBROMYALGIA
     Dosage: 200 MG, 2X/DAY
  3. TRAMADOL HCL [Suspect]
     Dosage: UNK
  4. HYDROCODONE [Suspect]
     Dosage: UNK
  5. LYRICA [Suspect]
     Indication: NEUROPATHY PERIPHERAL
     Dosage: 100 MG, 2X/DAY
     Route: 048
     Dates: start: 20060101
  6. FLEXERIL [Suspect]
     Dosage: UNK
  7. SYNTHROID [Concomitant]
     Indication: HYPERTHYROIDISM
     Dosage: UNK

REACTIONS (6)
  - OEDEMA PERIPHERAL [None]
  - NEOPLASM [None]
  - WEIGHT INCREASED [None]
  - ABASIA [None]
  - JOINT SWELLING [None]
  - CONVULSION [None]
